FAERS Safety Report 25422913 (Version 2)
Quarter: 2025Q2

REPORT INFORMATION
  Report Type: Spontaneous
  Country: ET (occurrence: ET)
  Receive Date: 20250611
  Receipt Date: 20250616
  Transmission Date: 20250717
  Serious: Yes (Hospitalization)
  Sender: PFIZER
  Company Number: ET-MLMSERVICE-20250530-PI525035-00053-1

PATIENT
  Age: 7 Month
  Sex: Female

DRUGS (23)
  1. MEROPENEM [Suspect]
     Active Substance: MEROPENEM
     Indication: Pneumonia
  2. MEROPENEM [Suspect]
     Active Substance: MEROPENEM
     Indication: Rickets
  3. MEROPENEM [Suspect]
     Active Substance: MEROPENEM
     Indication: Malaria
  4. AMPICILLIN [Suspect]
     Active Substance: AMPICILLIN
     Indication: Pyrexia
  5. ARTESUNATE [Suspect]
     Active Substance: ARTESUNATE
     Indication: Pneumonia
  6. ARTESUNATE [Suspect]
     Active Substance: ARTESUNATE
     Indication: Rickets
  7. ARTESUNATE [Suspect]
     Active Substance: ARTESUNATE
     Indication: Malaria
  8. CEFEPIME [Suspect]
     Active Substance: CEFEPIME HYDROCHLORIDE
     Indication: Pneumonia
  9. CEFEPIME [Suspect]
     Active Substance: CEFEPIME HYDROCHLORIDE
     Indication: Rickets
  10. CEFEPIME [Suspect]
     Active Substance: CEFEPIME HYDROCHLORIDE
     Indication: Malaria
  11. CEFTAZIDIME [Suspect]
     Active Substance: CEFTAZIDIME
     Indication: Pneumonia
  12. CEFTAZIDIME [Suspect]
     Active Substance: CEFTAZIDIME
     Indication: Rickets
  13. CEFTAZIDIME [Suspect]
     Active Substance: CEFTAZIDIME
     Indication: Malaria
  14. CEFTRIAXONE [Suspect]
     Active Substance: CEFTRIAXONE
     Indication: Pyrexia
  15. CIPROFLOXACIN [Suspect]
     Active Substance: CIPROFLOXACIN
     Indication: Pneumonia
  16. CIPROFLOXACIN [Suspect]
     Active Substance: CIPROFLOXACIN
     Indication: Rickets
  17. CIPROFLOXACIN [Suspect]
     Active Substance: CIPROFLOXACIN
     Indication: Malaria
  18. VANCOMYCIN [Suspect]
     Active Substance: VANCOMYCIN
     Indication: Pneumonia
  19. VANCOMYCIN [Suspect]
     Active Substance: VANCOMYCIN
     Indication: Rickets
  20. VANCOMYCIN [Suspect]
     Active Substance: VANCOMYCIN
     Indication: Malaria
  21. VITAMIN D NOS [Concomitant]
     Active Substance: CHOLECALCIFEROL\ERGOCALCIFEROL
     Indication: Pneumonia
  22. VITAMIN D NOS [Concomitant]
     Active Substance: CHOLECALCIFEROL\ERGOCALCIFEROL
     Indication: Rickets
  23. VITAMIN D NOS [Concomitant]
     Active Substance: CHOLECALCIFEROL\ERGOCALCIFEROL
     Indication: Malaria

REACTIONS (5)
  - Fungaemia [Recovered/Resolved]
  - Fungal infection [Recovered/Resolved]
  - Infantile diarrhoea [Recovered/Resolved]
  - Respiratory distress [Recovered/Resolved]
  - Cough [Recovered/Resolved]
